FAERS Safety Report 20078903 (Version 1)
Quarter: 2021Q4

REPORT INFORMATION
  Report Type: Spontaneous
  Country: JP (occurrence: JP)
  Receive Date: 20211117
  Receipt Date: 20211117
  Transmission Date: 20220303
  Serious: Yes (Hospitalization)
  Sender: FDA-Public Use
  Company Number: JP-TEVA-2021-JP-1977525

PATIENT
  Age: 77 Year
  Sex: Male

DRUGS (8)
  1. PREDNISOLONE [Suspect]
     Active Substance: PREDNISOLONE
     Indication: Diffuse large B-cell lymphoma
     Dosage: R-CHOP THERAPY?RECEIVED SIX COURSES
     Route: 065
  2. BROTIZOLAM [Suspect]
     Active Substance: BROTIZOLAM
     Indication: Insomnia
     Route: 065
  3. RITUXIMAB [Suspect]
     Active Substance: RITUXIMAB
     Indication: Diffuse large B-cell lymphoma
     Dosage: R-CHOP THERAPY AND R-MPV THERAPY?RECEIVED SIX COURSES
     Route: 065
  4. CYCLOPHOSPHAMIDE [Suspect]
     Active Substance: CYCLOPHOSPHAMIDE
     Indication: Diffuse large B-cell lymphoma
     Dosage: R-CHOP THERAPY?RECEIVED SIX COURSES
     Route: 065
  5. DOXORUBICIN [Suspect]
     Active Substance: DOXORUBICIN
     Indication: Diffuse large B-cell lymphoma
     Dosage: R-CHOP THERAPY?RECEIVED SIX COURSES
     Route: 065
  6. VINCRISTINE [Suspect]
     Active Substance: VINCRISTINE
     Indication: Diffuse large B-cell lymphoma
     Dosage: R-CHOP THERAPY AND R-MPV THERAPY?RECEIVED SIX COURSES
     Route: 065
  7. METHOTREXATE [Suspect]
     Active Substance: METHOTREXATE
     Indication: Diffuse large B-cell lymphoma
     Dosage: HIGH-DOSE; R-MPV THERAPY
     Route: 065
  8. PROCARBAZINE [Suspect]
     Active Substance: PROCARBAZINE
     Indication: Diffuse large B-cell lymphoma
     Dosage: R-MPV THERAPY
     Route: 065

REACTIONS (6)
  - Leukoencephalopathy [Not Recovered/Not Resolved]
  - Restlessness [Unknown]
  - Agitation [Unknown]
  - Altered state of consciousness [Unknown]
  - Suicide attempt [Unknown]
  - Delusion [Unknown]
